FAERS Safety Report 19623548 (Version 2)
Quarter: 2021Q4

REPORT INFORMATION
  Report Type: Report from Study
  Country: ZA (occurrence: ZA)
  Receive Date: 20210729
  Receipt Date: 20211111
  Transmission Date: 20220304
  Serious: Yes (Hospitalization, Other)
  Sender: FDA-Public Use
  Company Number: ZA-ABBVIE-20K-143-3499746-00

PATIENT
  Age: 67 Year
  Sex: Female

DRUGS (2)
  1. HUMIRA [Suspect]
     Active Substance: ADALIMUMAB
     Indication: Rheumatoid arthritis
     Route: 058
     Dates: start: 201611
  2. HUMIRA [Suspect]
     Active Substance: ADALIMUMAB
     Route: 058
     Dates: start: 20201218

REACTIONS (11)
  - Anaemia [Unknown]
  - Femur fracture [Recovering/Resolving]
  - Ankle fracture [Recovering/Resolving]
  - Lower limb fracture [Not Recovered/Not Resolved]
  - Wound secretion [Recovering/Resolving]
  - Fall [Recovering/Resolving]
  - Wound infection [Recovering/Resolving]
  - Impaired healing [Not Recovered/Not Resolved]
  - Bacterial infection [Recovering/Resolving]
  - Illness [Not Recovered/Not Resolved]
  - Condition aggravated [Not Recovered/Not Resolved]

NARRATIVE: CASE EVENT DATE: 20200701
